FAERS Safety Report 6504271-7 (Version None)
Quarter: 2009Q4

REPORT INFORMATION
  Report Type: 
  Country: None (occurrence: None)
  Receive Date: 20091217
  Receipt Date: 20091208
  Transmission Date: 20100525
  Serious: Yes (Other)
  Sender: FDA-Public Use
  Company Number: US-PFIZER INC-2009310266

PATIENT
  Sex: Female
  Weight: 65.76 kg

DRUGS (5)
  1. LIPITOR [Suspect]
     Indication: BLOOD CHOLESTEROL INCREASED
     Dosage: 20 MG, UNK
  2. PRAVACHOL [Suspect]
     Indication: BLOOD CHOLESTEROL INCREASED
  3. ZOCOR [Suspect]
     Indication: BLOOD CHOLESTEROL INCREASED
  4. VITAMIN B COMPLEX CAP [Concomitant]
  5. FISH OIL [Concomitant]

REACTIONS (15)
  - ARTHRALGIA [None]
  - CHEILITIS [None]
  - DIARRHOEA [None]
  - EAR DISCOMFORT [None]
  - FATIGUE [None]
  - GASTRITIS [None]
  - GLOSSODYNIA [None]
  - HEADACHE [None]
  - HYPERSENSITIVITY [None]
  - HYPOAESTHESIA FACIAL [None]
  - LIP PAIN [None]
  - ORAL DISCOMFORT [None]
  - OROPHARYNGEAL PAIN [None]
  - PAINFUL RESPIRATION [None]
  - PARAESTHESIA [None]
